FAERS Safety Report 6663725-3 (Version None)
Quarter: 2010Q2

REPORT INFORMATION
  Report Type: 
  Country: None (occurrence: None)
  Receive Date: 20100401
  Receipt Date: 20100322
  Transmission Date: 20101027
  Serious: Yes (Other)
  Sender: FDA-Public Use
  Company Number: CA-PFIZER INC-2010036341

PATIENT
  Age: 80 Year
  Sex: Female

DRUGS (4)
  1. NORVASC [Suspect]
     Dosage: 5 MG, UNK
  2. LIPITOR [Concomitant]
  3. ATENOLOL [Concomitant]
  4. DIURETICS [Concomitant]

REACTIONS (1)
  - CHOKING [None]
